FAERS Safety Report 5489957-8 (Version None)
Quarter: 2007Q4

REPORT INFORMATION
  Report Type: 
  Country: None (occurrence: None)
  Receive Date: 20071018
  Receipt Date: 20071008
  Transmission Date: 20080405
  Serious: Yes (Other)
  Sender: FDA-Public Use
  Company Number: US-SANOFI-SYNTHELABO-A03200705636

PATIENT
  Age: 56 Year
  Sex: Female
  Weight: 75.3 kg

DRUGS (9)
  1. AMBIEN CR [Suspect]
     Indication: INSOMNIA
     Route: 048
     Dates: start: 20060101, end: 20070907
  2. LEVOTHYROXINE SODIUM [Concomitant]
     Indication: HYPOTHYROIDISM
     Route: 048
     Dates: start: 20040101
  3. PROMETHAZINE [Concomitant]
     Indication: NAUSEA
     Dosage: 1/2 TAB TO 1 TABLET PRN
     Route: 048
     Dates: start: 20070101
  4. HEART MEDICATION [Concomitant]
     Indication: CARDIAC DISORDER
     Dosage: UNK
     Route: 065
  5. PSEUDOEPHEDRINE HCL [Concomitant]
     Indication: NASOPHARYNGITIS
     Dosage: 30 MG 2 TABLETS PRN
     Route: 048
  6. MOTRIN [Concomitant]
     Indication: ARTHRALGIA
     Dosage: 200 MG 1 TO 2 TABLETS PRN
     Route: 048
  7. MOTRIN [Concomitant]
     Indication: HEADACHE
     Dosage: 200 MG 1 TO 2 TABLETS PRN
     Route: 048
  8. NEXIUM [Concomitant]
     Indication: GASTROOESOPHAGEAL REFLUX DISEASE
     Route: 048
     Dates: start: 20070101
  9. LISINOPRIL [Concomitant]
     Indication: HYPERTENSION
     Dosage: 20/12.5 MG 2 TABLETS DAILY
     Route: 048
     Dates: start: 20040101

REACTIONS (3)
  - AMNESIA [None]
  - IMPAIRED DRIVING ABILITY [None]
  - SOMNAMBULISM [None]
